FAERS Safety Report 11738896 (Version 1)
Quarter: 2015Q4

REPORT INFORMATION
  Report Type: Spontaneous
  Country: US (occurrence: US)
  Receive Date: 20151113
  Receipt Date: 20151113
  Transmission Date: 20160304
  Serious: No
  Sender: FDA-Public Use
  Company Number: US-ROCHE-1250748

PATIENT
  Sex: Female

DRUGS (1)
  1. KADCYLA [Suspect]
     Active Substance: ADO-TRASTUZUMAB EMTANSINE
     Indication: BREAST CANCER
     Route: 065

REACTIONS (7)
  - Rash [Unknown]
  - Back pain [Unknown]
  - Urticaria [Unknown]
  - Insomnia [Unknown]
  - Bone pain [Unknown]
  - Joint swelling [Unknown]
  - Ejection fraction decreased [Unknown]
